FAERS Safety Report 7110461-5 (Version None)
Quarter: 2010Q4

REPORT INFORMATION
  Report Type: 
  Country: None (occurrence: None)
  Receive Date: 20101116
  Receipt Date: 20101116
  Transmission Date: 20110411
  Serious: Yes (Life-Threatening, Disabling, Other)
  Sender: FDA-Public Use
  Company Number: None

PATIENT
  Age: 52 Year
  Sex: Male
  Weight: 75 kg

DRUGS (1)
  1. OXYCONTIN [Suspect]
     Indication: BONE DISORDER
     Dosage: 60MG/OC 3X DAY OCYCONTIN 60MG OC61/2 YRS ; OCYCONTIN 60MG 6 DAYS NO/RELIEVE

REACTIONS (3)
  - ABDOMINAL PAIN UPPER [None]
  - CONSTIPATION [None]
  - VOMITING [None]
